FAERS Safety Report 18326055 (Version 1)
Quarter: 2020Q3

REPORT INFORMATION
  Report Type: Spontaneous
  Country: GB (occurrence: GB)
  Receive Date: 20200929
  Receipt Date: 20200929
  Transmission Date: 20201103
  Serious: Yes (Hospitalization)
  Sender: FDA-Public Use
  Company Number: GB-PFIZER INC-2020374545

PATIENT
  Age: 16 Month
  Sex: Female

DRUGS (5)
  1. LEVETIRACETAM. [Suspect]
     Active Substance: LEVETIRACETAM
     Dosage: 30 MG/KG, 1X/DAY
  2. VIGABATRIN. [Suspect]
     Active Substance: VIGABATRIN
     Dosage: 120 MG/KG, 1X/DAY
  3. LEVETIRACETAM. [Suspect]
     Active Substance: LEVETIRACETAM
     Indication: SEIZURE
     Dosage: 60 MG/KG, 1X/DAY
  4. CLONAZEPAM. [Suspect]
     Active Substance: CLONAZEPAM
     Dosage: 100 MG/KG, 1X/DAY
  5. CLOBAZAM. [Suspect]
     Active Substance: CLOBAZAM
     Indication: SEIZURE
     Dosage: 400 UG/KG, 1X/DAY

REACTIONS (2)
  - Somnolence [Unknown]
  - Coma blister [Recovered/Resolved]
